FAERS Safety Report 23267820 (Version 3)
Quarter: 2025Q1

REPORT INFORMATION
  Report Type: Spontaneous
  Country: JP (occurrence: JP)
  Receive Date: 20231206
  Receipt Date: 20250115
  Transmission Date: 20250409
  Serious: Yes (Hospitalization, Other)
  Sender: ALEXION PHARMACEUTICALS
  Company Number: 2023A273067

PATIENT
  Age: 68 Year

DRUGS (20)
  1. IMFINZI [Suspect]
     Active Substance: DURVALUMAB
     Indication: Small cell lung cancer
  2. IMFINZI [Suspect]
     Active Substance: DURVALUMAB
     Route: 041
  3. IMFINZI [Suspect]
     Active Substance: DURVALUMAB
  4. IMFINZI [Suspect]
     Active Substance: DURVALUMAB
     Route: 041
  5. CARBOPLATIN [Concomitant]
     Active Substance: CARBOPLATIN
     Indication: Small cell lung cancer
     Route: 065
  6. CARBOPLATIN [Concomitant]
     Active Substance: CARBOPLATIN
     Route: 065
  7. CARBOPLATIN [Concomitant]
     Active Substance: CARBOPLATIN
     Route: 065
  8. CARBOPLATIN [Concomitant]
     Active Substance: CARBOPLATIN
     Route: 065
  9. CARBOPLATIN [Concomitant]
     Active Substance: CARBOPLATIN
     Route: 065
  10. CARBOPLATIN [Concomitant]
     Active Substance: CARBOPLATIN
     Route: 065
  11. CARBOPLATIN [Concomitant]
     Active Substance: CARBOPLATIN
     Route: 065
  12. CARBOPLATIN [Concomitant]
     Active Substance: CARBOPLATIN
     Route: 065
  13. ETOPOSIDE [Concomitant]
     Active Substance: ETOPOSIDE
     Indication: Small cell lung cancer
     Route: 065
  14. ETOPOSIDE [Concomitant]
     Active Substance: ETOPOSIDE
     Route: 065
  15. ETOPOSIDE [Concomitant]
     Active Substance: ETOPOSIDE
     Route: 065
  16. ETOPOSIDE [Concomitant]
     Active Substance: ETOPOSIDE
     Route: 065
  17. ETOPOSIDE [Concomitant]
     Active Substance: ETOPOSIDE
     Route: 065
  18. ETOPOSIDE [Concomitant]
     Active Substance: ETOPOSIDE
     Route: 065
  19. ETOPOSIDE [Concomitant]
     Active Substance: ETOPOSIDE
     Route: 065
  20. ETOPOSIDE [Concomitant]
     Active Substance: ETOPOSIDE
     Route: 065

REACTIONS (4)
  - Memory impairment [Recovering/Resolving]
  - Encephalitis autoimmune [Unknown]
  - Orthostatic hypotension [Unknown]
  - Autonomic nervous system imbalance [Unknown]
